FAERS Safety Report 16588714 (Version 1)
Quarter: 2019Q3

REPORT INFORMATION
  Report Type: Spontaneous
  Country: US (occurrence: US)
  Receive Date: 20190718
  Receipt Date: 20190718
  Transmission Date: 20191004
  Serious: No
  Sender: FDA-Public Use
  Company Number: US-JNJFOC-20190721412

PATIENT
  Sex: Female
  Weight: 90.35 kg

DRUGS (3)
  1. ZOLOFT [Concomitant]
     Active Substance: SERTRALINE HYDROCHLORIDE
     Indication: ANXIETY
  2. ZYRTEC [Suspect]
     Active Substance: CETIRIZINE HYDROCHLORIDE
     Indication: EAR DISCOMFORT
     Dosage: 10 MG ONCE DAILY AS NEEDED
     Route: 065
  3. ZOLOFT [Concomitant]
     Active Substance: SERTRALINE HYDROCHLORIDE
     Indication: PANIC ATTACK
     Dosage: 100 MG TABLET, TWICE DAILY BY MOUTH
     Route: 048
     Dates: start: 201501, end: 201503

REACTIONS (1)
  - Product use in unapproved indication [Unknown]
